FAERS Safety Report 9306642 (Version 1)
Quarter: 2013Q1

REPORT INFORMATION
  Report Type: Spontaneous
  Country: US (occurrence: None)
  Receive Date: 20130328
  Receipt Date: 20130328
  Transmission Date: 20140127
  Serious: Yes (Other)
  Sender: FDA-Public Use
  Company Number: 2013-0410

PATIENT
  Age: 61 Year
  Sex: Female

DRUGS (25)
  1. SOMATULINE [Suspect]
     Indication: ACROMEGALY
     Dosage: 60 MG (60 MG,L IN 28 D),SUBCUTANEOUS
     Route: 058
     Dates: start: 2006
  2. LISINOPRIL-HYDROCHLOROTHIAZIDE(PRINZIDE) [Concomitant]
  3. TRAMADOL 50 MG(TRAMADOL) [Concomitant]
  4. VITAMIN D(ERGOCALCIFEROL) [Concomitant]
  5. MAGNESIUM(MAGNESIUM) [Concomitant]
  6. MULTIVITAMIN(MULTIVITAMINS) [Concomitant]
  7. TRAZODONE(TRAZODONE) [Concomitant]
  8. TOPAMAX(TOPIRAMATE) [Concomitant]
  9. NEXIUM(ESOMEPRAZOLE MAGNESIUM) [Concomitant]
  10. PLAVIX(CLOPIDOGREL SULFATE) [Concomitant]
  11. RANITIDINE(RANITIDINE) [Concomitant]
  12. VITMAIN B12(CYANOOOBALAMIN) [Concomitant]
  13. NITROGLYCERIN(GLYCERYL TRINITRATE) [Concomitant]
  14. NAMENDA(MEMANTINE HYDROCHLORIDE) [Concomitant]
  15. SYNTHROID(LEVOTHYROXINE SODIUM) [Concomitant]
  16. BUPROPION HCL(BUPROPION HYDROCHLORIDE) [Concomitant]
  17. FISH OIL(FISH OIL) [Concomitant]
  18. CARVEDIOL(CARVEDILOL) [Concomitant]
  19. ROPINIROLE(ROPINIROLE) [Concomitant]
  20. WELCHOL(COLESEVELAM HYDROCHLORIDE) [Concomitant]
  21. CALCIUM D(CALCIUM D) [Concomitant]
  22. LIPITOR(ATORVASTATIN) [Concomitant]
  23. LEXAPRO(ESCITALOPRAM OXALATE) [Concomitant]
  24. VENTOLIN HFA(SALBUTAMOL SULFATE) [Concomitant]
  25. MIRALAX(MACROGOL) [Concomitant]

REACTIONS (7)
  - Silent myocardial infarction [None]
  - Arthralgia [None]
  - Back pain [None]
  - Fall [None]
  - Carpal tunnel syndrome [None]
  - Nerve compression [None]
  - Weight increased [None]
